FAERS Safety Report 4866821-6 (Version None)
Quarter: 2005Q4

REPORT INFORMATION
  Report Type: 
  Country: None (occurrence: None)
  Receive Date: 20051222
  Receipt Date: 20051206
  Transmission Date: 20060501
  Serious: Yes (Death)
  Sender: FDA-Public Use
  Company Number: S05-AUS-05677-01

PATIENT
  Age: 45 Year
  Sex: Male

DRUGS (4)
  1. CITALOPRAM HYDROBROMIDE [Suspect]
     Indication: DEPRESSION
     Dosage: 20 MG BID PO
     Route: 048
     Dates: start: 20030101
  2. OLANZAPINE [Concomitant]
  3. GLYCERYL TRINITRATE [Concomitant]
  4. NORVASC [Concomitant]

REACTIONS (2)
  - DRUG TOXICITY [None]
  - MYOCARDIAL ISCHAEMIA [None]
